FAERS Safety Report 11639597 (Version 1)
Quarter: 2015Q4

REPORT INFORMATION
  Report Type: Report from Study
  Country: US (occurrence: US)
  Receive Date: 20151019
  Receipt Date: 20151019
  Transmission Date: 20160304
  Serious: Yes (Hospitalization)
  Sender: FDA-Public Use
  Company Number: US-ROCHE-1645145

PATIENT
  Age: 58 Year
  Sex: Female
  Weight: 104.32 kg

DRUGS (4)
  1. PEGFILGRASTIM [Suspect]
     Active Substance: PEGFILGRASTIM
     Indication: UTERINE LEIOMYOSARCOMA
     Dosage: DATE OF LAST DOSE PRIOR TO SAE: 05/NOV/2010
     Route: 058
     Dates: start: 20100709
  2. BEVACIZUMAB [Suspect]
     Active Substance: BEVACIZUMAB
     Indication: UTERINE LEIOMYOSARCOMA
     Dosage: DATE OF LAST DOSE PRIOR TOSAE: 28/OCT/2010
     Route: 042
     Dates: start: 20100701
  3. DOCETAXEL. [Suspect]
     Active Substance: DOCETAXEL
     Indication: UTERINE LEIOMYOSARCOMA
     Dosage: DATE OF LAST DOSE PRIOR TO SAE: 04/NOV/2010
     Route: 042
     Dates: start: 20100708
  4. GEMCITABINE HYDROCHLORIDE. [Suspect]
     Active Substance: GEMCITABINE HYDROCHLORIDE
     Indication: UTERINE LEIOMYOSARCOMA
     Dosage: DATE OF LAST DOSE PRIOR TO SAE: 04/NOV/2010
     Route: 042
     Dates: start: 20100701

REACTIONS (1)
  - Hypoxia [Recovered/Resolved]

NARRATIVE: CASE EVENT DATE: 20101117
